FAERS Safety Report 5126906-6 (Version None)
Quarter: 2006Q3

REPORT INFORMATION
  Report Type: 
  Country: None (occurrence: None)
  Receive Date: 20060828
  Receipt Date: 20060206
  Transmission Date: 20061208
  Serious: Yes (Other)
  Sender: FDA-Public Use
  Company Number: 250618

PATIENT
  Age: 59 Year
  Sex: Female

DRUGS (4)
  1. VAGIFEM [Suspect]
     Indication: VULVOVAGINAL DRYNESS
     Dosage: SEE IMAGE
     Route: 067
     Dates: start: 20051101, end: 20051115
  2. VAGIFEM [Suspect]
     Indication: VULVOVAGINAL DRYNESS
     Dosage: SEE IMAGE
     Route: 067
     Dates: start: 20051116
  3. EVISTA [Concomitant]
  4. PRAVACHOL [Concomitant]

REACTIONS (1)
  - RASH [None]
